FAERS Safety Report 10974115 (Version 1)
Quarter: 2015Q2

REPORT INFORMATION
  Report Type: Spontaneous
  Country: US (occurrence: US)
  Receive Date: 20150401
  Receipt Date: 20150401
  Transmission Date: 20150821
  Serious: Yes (Hospitalization, Other)
  Sender: FDA-Public Use
  Company Number: US-SUN PHARMACEUTICAL INDUSTRIES LTD-2015SUN00859

PATIENT
  Age: 61 Year
  Sex: Male

DRUGS (4)
  1. CALCIUM LEUCOVORIN [Concomitant]
     Active Substance: LEUCOVORIN CALCIUM
     Indication: COLON CANCER METASTATIC
     Dosage: 400 MG/M2, DAY 1 OF CYCLE 18
  2. OXALIPLATIN. [Suspect]
     Active Substance: OXALIPLATIN
     Indication: COLON CANCER METASTATIC
     Dosage: 85 MG/M2, ON DAY 1 OF CYCLE 18
     Route: 065
  3. BEVACIZUMAB [Concomitant]
     Active Substance: BEVACIZUMAB
     Indication: COLON CANCER METASTATIC
     Dosage: 5 MG/KG, DAY 1 OF CYCLE 18
  4. OXALIPLATIN. [Suspect]
     Active Substance: OXALIPLATIN
     Dosage: 60 MG, DAY 1 OF CYCLE 19
     Route: 065

REACTIONS (7)
  - Disseminated intravascular coagulation [Recovered/Resolved]
  - Blood pressure decreased [None]
  - Leukaemoid reaction [None]
  - Haemolytic anaemia [Recovered/Resolved]
  - Acute kidney injury [Recovered/Resolved]
  - Gingival bleeding [None]
  - Metabolic acidosis [Recovered/Resolved]
